FAERS Safety Report 6979890-4 (Version None)
Quarter: 2010Q3

REPORT INFORMATION
  Report Type: 
  Country: None (occurrence: None)
  Receive Date: 20100909
  Receipt Date: 20100827
  Transmission Date: 20110219
  Serious: Yes (Other)
  Sender: FDA-Public Use
  Company Number: 2009EU002916

PATIENT
  Age: 13 Year
  Sex: Male

DRUGS (13)
  1. TACROLIMUS [Suspect]
     Indication: HEART TRANSPLANT
  2. THIOGUANINE [Suspect]
     Indication: CHEMOTHERAPY
  3. AZATHIOPRINE [Suspect]
     Indication: HEART TRANSPLANT
  4. DOXORUBICIN HCL [Suspect]
     Indication: CHEMOTHERAPY
  5. CYCLOPHOSPHAMIDE [Suspect]
     Indication: CHEMOTHERAPY
  6. CYTARABINE [Concomitant]
     Indication: CHEMOTHERAPY
  7. DEXRAZOXANE [Suspect]
     Indication: CHEMOTHERAPY
  8. ETOPOSIDE [Suspect]
  9. METHOTREXATE [Suspect]
     Dosage: TOTAL DOSE, INTRATHECAL
     Route: 037
  10. PREDNISOLONE [Suspect]
     Indication: HEART TRANSPLANT
  11. RITUXIMAB (RITUXIMAB) [Suspect]
     Indication: CHEMOTHERAPY
  12. VINCRISTINE [Suspect]
     Indication: CHEMOTHERAPY
  13. CYCLOSPORINE [Concomitant]

REACTIONS (18)
  - ABDOMINAL PAIN [None]
  - ABDOMINAL SYMPTOM [None]
  - BURKITT'S LYMPHOMA [None]
  - DEVICE RELATED INFECTION [None]
  - DEVICE RELATED SEPSIS [None]
  - EPSTEIN-BARR VIRUS ASSOCIATED LYMPHOPROLIFERATIVE DISORDER [None]
  - EPSTEIN-BARR VIRUS INFECTION [None]
  - HAEMODIALYSIS [None]
  - LYMPHADENOPATHY [None]
  - MASS [None]
  - MEDIASTINAL DISORDER [None]
  - MUSCLE CONTRACTIONS INVOLUNTARY [None]
  - PNEUMOCYSTIS JIROVECI PNEUMONIA [None]
  - PNEUMONITIS [None]
  - RENAL FAILURE [None]
  - STAPHYLOCOCCAL BACTERAEMIA [None]
  - TIC [None]
  - TUMOUR LYSIS SYNDROME [None]
